FAERS Safety Report 13561359 (Version 3)
Quarter: 2017Q3

REPORT INFORMATION
  Report Type: Spontaneous
  Country: AU (occurrence: AU)
  Receive Date: 20170518
  Receipt Date: 20170722
  Transmission Date: 20171127
  Serious: Yes (Death, Other)
  Sender: FDA-Public Use
  Company Number: AU-MYLANLABS-2017M1028808

PATIENT
  Age: 42 Year
  Sex: Female

DRUGS (47)
  1. ENDEP [Suspect]
     Active Substance: AMITRIPTYLINE HYDROCHLORIDE
     Dosage: 6 DF, HS
     Dates: start: 20150618
  2. BRUFEN [Suspect]
     Active Substance: IBUPROFEN
     Indication: PRODUCT USED FOR UNKNOWN INDICATION
     Dosage: 400 MG, UNK
  3. OXYCONTIN [Suspect]
     Active Substance: OXYCODONE HYDROCHLORIDE
     Dosage: TOTAL OF 170MG PER DAY
     Dates: start: 20140131
  4. STILNOX [Suspect]
     Active Substance: ZOLPIDEM TARTRATE
     Dosage: 30 MG, HS
  5. ENDONE [Suspect]
     Active Substance: OXYCODONE HYDROCHLORIDE
     Indication: PAIN IN EXTREMITY
     Dosage: 16 DF, QD (A TOTAL OF 80MG PER DAY)
     Dates: start: 20150218
  6. ENDONE [Suspect]
     Active Substance: OXYCODONE HYDROCHLORIDE
     Dosage: 14 DF, QD
     Dates: start: 20150604
  7. OXYCONTIN [Suspect]
     Active Substance: OXYCODONE HYDROCHLORIDE
     Dosage: 80 MG TWICE DAILY AND 20 MG AT LUNCH TIME
     Dates: start: 20131010
  8. OXYCONTIN [Suspect]
     Active Substance: OXYCODONE HYDROCHLORIDE
     Dosage: 140MG PER DAY (80MG X 28, 40MG X 28 AND 20MG X 28)
     Dates: start: 20131120
  9. OXYCONTIN [Suspect]
     Active Substance: OXYCODONE HYDROCHLORIDE
     Dosage: OXYCONTIN 40MG X 56 AND 30MG X 28 (TOTAL 110MG PER DAY).
     Dates: start: 20140228
  10. OXYCONTIN [Suspect]
     Active Substance: OXYCODONE HYDROCHLORIDE
     Dosage: 220-230 MG PER DAY
     Dates: start: 20150129
  11. STILNOX [Suspect]
     Active Substance: ZOLPIDEM TARTRATE
     Dosage: 2 DF, HS
  12. METHADONE [Suspect]
     Active Substance: METHADONE HYDROCHLORIDE
     Indication: PRODUCT USED FOR UNKNOWN INDICATION
     Dosage: 10 MG, BID
     Dates: start: 20150130
  13. METHADONE [Suspect]
     Active Substance: METHADONE HYDROCHLORIDE
     Dosage: 30 MG, BID
     Dates: start: 20150207
  14. LYRICA [Suspect]
     Active Substance: PREGABALIN
     Dosage: 225 MG, BID
     Dates: start: 20150610
  15. ENDEP [Suspect]
     Active Substance: AMITRIPTYLINE HYDROCHLORIDE
     Indication: PRODUCT USED FOR UNKNOWN INDICATION
     Dosage: 3 DF, HS
     Dates: start: 2012
  16. OXYCONTIN [Suspect]
     Active Substance: OXYCODONE HYDROCHLORIDE
     Dosage: 80 MG TWICE DAILY AND 20 MG AT LUNCH TIME
     Dates: start: 20130918
  17. OXYCONTIN [Suspect]
     Active Substance: OXYCODONE HYDROCHLORIDE
     Dosage: 80MG X 56 AND 20MG X 28 (170MG PER DAY).
     Dates: start: 20140612
  18. OXYCONTIN [Suspect]
     Active Substance: OXYCODONE HYDROCHLORIDE
     Dosage: 80MG X 56 AND 20MG X 28 (170MG PER DAY).
     Dates: start: 20140616
  19. METHADONE [Suspect]
     Active Substance: METHADONE HYDROCHLORIDE
     Dosage: 40 MG, BID
     Dates: start: 20150217
  20. ENDONE [Suspect]
     Active Substance: OXYCODONE HYDROCHLORIDE
     Dosage: 2X2 IN DAY THEN 4 AT NIGHT
     Dates: start: 20150423
  21. OXYCONTIN [Suspect]
     Active Substance: OXYCODONE HYDROCHLORIDE
     Dosage: 80 MG BID AND 20 MG IN MIDDLE OF DAY
     Dates: start: 20130704
  22. METHADONE [Suspect]
     Active Substance: METHADONE HYDROCHLORIDE
     Dosage: 20 MG, BID
     Dates: start: 20150202
  23. METHADONE [Suspect]
     Active Substance: METHADONE HYDROCHLORIDE
     Dosage: 40 MG, BID
     Dates: start: 20150218
  24. LYRICA [Suspect]
     Active Substance: PREGABALIN
     Indication: PRODUCT USED FOR UNKNOWN INDICATION
     Dosage: 150 MG, BID
     Dates: start: 20150218
  25. LYRICA [Suspect]
     Active Substance: PREGABALIN
     Dosage: 600 MG, QD
  26. LYRICA [Suspect]
     Active Substance: PREGABALIN
     Dosage: 300 MG, BID
     Dates: start: 20150521
  27. PANAMAX [Suspect]
     Active Substance: ACETAMINOPHEN
     Indication: PRODUCT USED FOR UNKNOWN INDICATION
     Dosage: UNK
  28. ENDEP [Suspect]
     Active Substance: AMITRIPTYLINE HYDROCHLORIDE
     Dosage: 100 MG, HS
     Dates: start: 20150521
  29. OXYCONTIN [Suspect]
     Active Substance: OXYCODONE HYDROCHLORIDE
     Indication: PAIN
     Dosage: 80 MG, QID
     Dates: start: 2012
  30. OXYCONTIN [Suspect]
     Active Substance: OXYCODONE HYDROCHLORIDE
     Dosage: 80 MG TWICE DAILY AND 20 MG AT LUNCH TIME
     Dates: start: 20130729
  31. OXYCONTIN [Suspect]
     Active Substance: OXYCODONE HYDROCHLORIDE
     Dosage: 80 MG TWICE DAILY AND 20 MG AT LUNCH TIME
     Dates: start: 20130821
  32. OXYCONTIN [Suspect]
     Active Substance: OXYCODONE HYDROCHLORIDE
     Dosage: 80MG X 56 AND 20MG X 28 (170MG PER DAY). UNK
     Dates: start: 20140613
  33. OXYCONTIN [Suspect]
     Active Substance: OXYCODONE HYDROCHLORIDE
     Dosage: 100 MG, BID
  34. NARAMIG [Suspect]
     Active Substance: NARATRIPTAN HYDROCHLORIDE
     Indication: MIGRAINE
     Dosage: 1 DF, PRN
     Dates: start: 2012
  35. LYRICA [Suspect]
     Active Substance: PREGABALIN
     Dosage: 225 MG, BID
     Dates: start: 20150326
  36. ENDEP [Suspect]
     Active Substance: AMITRIPTYLINE HYDROCHLORIDE
     Dosage: 150 MG, HS
     Dates: start: 20150610
  37. OXYCONTIN [Suspect]
     Active Substance: OXYCODONE HYDROCHLORIDE
     Dosage: 130MG PER DAY (80MG X 28, 40MG X 28 AND 10MG X 28).
     Dates: start: 20131209
  38. OXYCONTIN [Suspect]
     Active Substance: OXYCODONE HYDROCHLORIDE
     Dosage: 120MG PER DAY (80MG X 28, 40MG X 28).
     Dates: start: 20140102
  39. STILNOX [Suspect]
     Active Substance: ZOLPIDEM TARTRATE
     Indication: INSOMNIA
     Dosage: 3 DF, HS
     Dates: start: 2012
  40. ENDONE [Suspect]
     Active Substance: OXYCODONE HYDROCHLORIDE
     Dosage: 16 DF, QD
     Dates: start: 20150521
  41. ENDEP [Suspect]
     Active Substance: AMITRIPTYLINE HYDROCHLORIDE
     Dosage: 75 MG, HS
  42. GABAPENTIN. [Suspect]
     Active Substance: GABAPENTIN
     Indication: NEURALGIA
     Dosage: 300 MG, QID
     Dates: start: 2012
  43. OXYCONTIN [Suspect]
     Active Substance: OXYCODONE HYDROCHLORIDE
     Dosage: OXYCONTIN 40MG X 56 AND 30MG X 28 (TOTAL 110MG PER DAY)
     Dates: start: 20140224
  44. OXYCONTIN [Suspect]
     Active Substance: OXYCODONE HYDROCHLORIDE
     Dosage: 80MG X 56 AND 20MG X 28 (170MG PER DAY).
     Dates: start: 20140611
  45. ENDEP [Suspect]
     Active Substance: AMITRIPTYLINE HYDROCHLORIDE
     Dosage: 125 MG, HS
  46. OXYCONTIN [Suspect]
     Active Substance: OXYCODONE HYDROCHLORIDE
     Dosage: 80 MG (TOTAL 160 MG DAILY)
     Dates: start: 20131014
  47. TARGIN [Suspect]
     Active Substance: NALOXONE HYDROCHLORIDE\OXYCODONE HYDROCHLORIDE
     Indication: PAIN IN EXTREMITY
     Dosage: UNK

REACTIONS (19)
  - Nausea [Unknown]
  - Erythema [Unknown]
  - Death [Fatal]
  - Toxicity to various agents [Unknown]
  - Pain [Unknown]
  - Peripheral swelling [Unknown]
  - Dyspnoea [Unknown]
  - Weight increased [Unknown]
  - Dizziness [Unknown]
  - Fall [Unknown]
  - Migraine [Unknown]
  - Medication error [Unknown]
  - Drug dependence [Unknown]
  - Eye pain [Unknown]
  - Photophobia [Unknown]
  - Flushing [Unknown]
  - Withdrawal syndrome [Unknown]
  - Overdose [Unknown]
  - Hyperhidrosis [Unknown]

NARRATIVE: CASE EVENT DATE: 20141108
